FAERS Safety Report 8835780 (Version 3)
Quarter: 2012Q4

REPORT INFORMATION
  Report Type: 
  Country: US (occurrence: US)
  Receive Date: 20121011
  Receipt Date: 20121107
  Transmission Date: 20130627
  Serious: No
  Sender: FDA-Public Use
  Company Number: US-ASTRAZENECA-2012SE75170

PATIENT
  Age: 74 Year
  Sex: Female

DRUGS (5)
  1. SYMBICORT PMDI [Suspect]
     Indication: ASTHMA
     Dosage: 160/4.5 MCG, BID
     Route: 055
  2. SINGULAIR [Concomitant]
  3. ANTI HISTAMINES [Concomitant]
  4. ORAL STEROIDS [Concomitant]
     Route: 048
  5. THEOPHYLLINE [Concomitant]

REACTIONS (6)
  - Asthma [Recovered/Resolved]
  - Activities of daily living impaired [Unknown]
  - Impaired work ability [Unknown]
  - Nasopharyngitis [Unknown]
  - Cough [Unknown]
  - Drug ineffective [Unknown]
